FAERS Safety Report 24021290 (Version 5)
Quarter: 2024Q3

REPORT INFORMATION
  Report Type: Report from Study
  Country: CA (occurrence: CA)
  Receive Date: 20240627
  Receipt Date: 20240909
  Transmission Date: 20241017
  Serious: Yes (Other)
  Sender: TAKEDA
  Company Number: CA-TAKEDA-2023TUS116473

PATIENT
  Age: 71 Year
  Sex: Female

DRUGS (11)
  1. VEDOLIZUMAB [Suspect]
     Active Substance: VEDOLIZUMAB
     Indication: Colitis ulcerative
     Dosage: 300 MILLIGRAM
     Route: 042
     Dates: start: 20231114
  2. VEDOLIZUMAB [Suspect]
     Active Substance: VEDOLIZUMAB
     Dosage: 300 MILLIGRAM
     Route: 042
  3. VEDOLIZUMAB [Suspect]
     Active Substance: VEDOLIZUMAB
     Dosage: 300 MILLIGRAM
     Route: 042
  4. VEDOLIZUMAB [Suspect]
     Active Substance: VEDOLIZUMAB
     Dosage: 300 MILLIGRAM, Q4WEEKS
     Route: 042
     Dates: start: 20240711
  5. VEDOLIZUMAB [Suspect]
     Active Substance: VEDOLIZUMAB
     Dosage: 300 MILLIGRAM, Q4WEEKS
     Route: 042
  6. PANTOPRAZOLE SODIUM [Suspect]
     Active Substance: PANTOPRAZOLE SODIUM
     Indication: Dyspepsia
     Dosage: UNK
     Route: 065
  7. SYNTHROID [Concomitant]
     Active Substance: LEVOTHYROXINE SODIUM
     Dosage: 0.888 MICROGRAM, QD
  8. INDAPAMIDE [Concomitant]
     Active Substance: INDAPAMIDE
     Dosage: 1.25 MILLIGRAM, QD
  9. TELMISARTAN [Concomitant]
     Active Substance: TELMISARTAN
     Dosage: 40 MILLIGRAM, QD
  10. CELEBREX [Concomitant]
     Active Substance: CELECOXIB
     Dosage: UNK
  11. ESTROGEL [Concomitant]
     Active Substance: ESTRADIOL
     Dosage: UNK

REACTIONS (14)
  - Colitis ulcerative [Not Recovered/Not Resolved]
  - Haematochezia [Unknown]
  - Dry mouth [Not Recovered/Not Resolved]
  - Dizziness [Not Recovered/Not Resolved]
  - Decreased appetite [Not Recovered/Not Resolved]
  - Nausea [Not Recovered/Not Resolved]
  - Drug ineffective [Unknown]
  - Frequent bowel movements [Recovering/Resolving]
  - Faeces soft [Recovering/Resolving]
  - Rectal tenesmus [Recovering/Resolving]
  - Off label use [Unknown]
  - Abdominal pain [Recovering/Resolving]
  - Haemorrhoids [Unknown]
  - Infusion site extravasation [Recovered/Resolved]

NARRATIVE: CASE EVENT DATE: 20240711
